FAERS Safety Report 25009085 (Version 1)
Quarter: 2025Q1

REPORT INFORMATION
  Report Type: Other
  Country: KR (occurrence: KR)
  Receive Date: 20250225
  Receipt Date: 20250225
  Transmission Date: 20250408
  Serious: Yes (Congenital Anomaly, Other)
  Sender: DUCHESNAY
  Company Number: KR-DUCHESNAY-2025KR000067

PATIENT

DRUGS (1)
  1. DICLECTIN [Suspect]
     Active Substance: DOXYLAMINE SUCCINATE\PYRIDOXINE HYDROCHLORIDE
     Indication: Foetal exposure during pregnancy
     Dosage: 2 DF / 1 DAY
     Route: 064

REACTIONS (1)
  - Tethered oral tissue [Recovered/Resolved]

NARRATIVE: CASE EVENT DATE: 20230101
